FAERS Safety Report 4617870-4 (Version None)
Quarter: 2005Q1

REPORT INFORMATION
  Report Type: 
  Country: None (occurrence: None)
  Receive Date: 20050324
  Receipt Date: 20050121
  Transmission Date: 20050727
  Serious: Yes (Other)
  Sender: FDA-Public Use
  Company Number: PHFR2005GB00665

PATIENT
  Sex: Female
  Weight: 77 kg

DRUGS (10)
  1. LETROZOLE [Suspect]
     Dosage: 2.5 MG, QD
     Dates: start: 20040116
  2. ATENOLOL [Concomitant]
     Dosage: 50MG/DAY
  3. ZOMETA [Suspect]
     Indication: BREAST CANCER
     Dates: start: 20031201
  4. ATORVASTATIN CALCIUM [Concomitant]
     Dosage: 10MG/DAY
  5. BENDROFLUAZIDE [Concomitant]
     Dosage: 2.5MG/DAY
  6. ZOCOR [Concomitant]
  7. PARACETAMOL [Concomitant]
  8. BENADRYL [Concomitant]
  9. ALLOPURINOL [Concomitant]
  10. LIPITOR [Concomitant]

REACTIONS (10)
  - ABASIA [None]
  - BACK DISORDER [None]
  - BLOOD URIC ACID INCREASED [None]
  - CONCOMITANT DISEASE PROGRESSION [None]
  - GOUT [None]
  - IMMOBILE [None]
  - JOINT SWELLING [None]
  - LOCAL SWELLING [None]
  - PAIN [None]
  - PARAESTHESIA [None]
